FAERS Safety Report 25784820 (Version 1)
Quarter: 2025Q3

REPORT INFORMATION
  Report Type: Spontaneous
  Country: US (occurrence: US)
  Receive Date: 20250910
  Receipt Date: 20250910
  Transmission Date: 20251020
  Serious: No
  Sender: BLUEPRINT MEDICINES
  Company Number: US-Blueprint Medicines Corporation-2025-AER-01954

PATIENT
  Age: 37 Year
  Sex: Female

DRUGS (1)
  1. AYVAKIT [Suspect]
     Active Substance: AVAPRITINIB
     Indication: Mastocytoma
     Route: 065
     Dates: start: 20230907

REACTIONS (6)
  - Mastocytoma [Unknown]
  - Condition aggravated [Unknown]
  - Stress [Unknown]
  - Fatigue [Unknown]
  - Gastrointestinal disorder [Unknown]
  - Dyspepsia [Unknown]
